FAERS Safety Report 23331106 (Version 8)
Quarter: 2024Q4

REPORT INFORMATION
  Report Type: Spontaneous
  Country: PL (occurrence: PL)
  Receive Date: 20231222
  Receipt Date: 20241029
  Transmission Date: 20250114
  Serious: Yes (Life-Threatening, Hospitalization, Disabling, Other)
  Sender: PFIZER
  Company Number: PL-TAKEDA-2023TUS121466

PATIENT
  Age: 59 Year
  Sex: Male

DRUGS (9)
  1. PANTOPRAZOLE [Suspect]
     Active Substance: PANTOPRAZOLE
     Dosage: UNK
     Route: 065
  2. AMOXICILLIN [Suspect]
     Active Substance: AMOXICILLIN
     Indication: Cirrhosis alcoholic
     Dosage: UNK
  3. CIPROFLOXACIN [Suspect]
     Active Substance: CIPROFLOXACIN
     Indication: Cirrhosis alcoholic
     Dosage: UNK
  4. METRONIDAZOLE [Suspect]
     Active Substance: METRONIDAZOLE
     Indication: Cirrhosis alcoholic
     Dosage: UNK
  5. AMLODIPINE [Suspect]
     Active Substance: AMLODIPINE BESYLATE
     Indication: Cirrhosis alcoholic
     Dosage: UNK
  6. FUROSEMIDE [Suspect]
     Active Substance: FUROSEMIDE
     Indication: Cirrhosis alcoholic
     Dosage: UNK
  7. RAMIPRIL [Suspect]
     Active Substance: RAMIPRIL
     Indication: Cirrhosis alcoholic
     Dosage: UNK
  8. SPIRONOLACTONE [Suspect]
     Active Substance: SPIRONOLACTONE
     Indication: Cirrhosis alcoholic
     Dosage: UNK
  9. TIMONACIC [Suspect]
     Active Substance: TIMONACIC
     Dosage: UNK

REACTIONS (1)
  - Toxic epidermal necrolysis [Not Recovered/Not Resolved]
